FAERS Safety Report 8398665-5 (Version None)
Quarter: 2012Q1

REPORT INFORMATION
  Report Type: 
  Country: None (occurrence: None)
  Receive Date: 20120323
  Receipt Date: 20111213
  Transmission Date: 20120608
  Serious: Yes (Other)
  Sender: FDA-Public Use
  Company Number: 163-21880-11120149

PATIENT
  Age: 67 Year
  Sex: Female

DRUGS (2)
  1. REVLIMID [Suspect]
     Indication: MULTIPLE MYELOMA
     Dosage: 10 MG, DAILY FOR 21 DAYS, 7 DAYS OFF, PO
     Route: 048
     Dates: start: 20111001, end: 20111122
  2. REVLIMID [Suspect]

REACTIONS (2)
  - RASH GENERALISED [None]
  - UNEVALUABLE EVENT [None]
